FAERS Safety Report 25434088 (Version 1)
Quarter: 2025Q2

REPORT INFORMATION
  Report Type: Spontaneous
  Country: JP (occurrence: JP)
  Receive Date: 20250613
  Receipt Date: 20250613
  Transmission Date: 20250717
  Serious: Yes (Other)
  Sender: GALDERMA
  Company Number: JP-GALDERMA-JP2025009874

PATIENT

DRUGS (7)
  1. NEMOLIZUMAB [Suspect]
     Active Substance: NEMOLIZUMAB
     Indication: Dermatitis atopic
     Route: 058
     Dates: start: 20241125, end: 20241125
  2. NEMOLIZUMAB [Suspect]
     Active Substance: NEMOLIZUMAB
     Route: 058
  3. NEMOLIZUMAB [Suspect]
     Active Substance: NEMOLIZUMAB
     Route: 058
  4. NEMOLIZUMAB [Suspect]
     Active Substance: NEMOLIZUMAB
     Route: 058
  5. NEMOLIZUMAB [Suspect]
     Active Substance: NEMOLIZUMAB
     Route: 058
  6. NEMOLIZUMAB [Suspect]
     Active Substance: NEMOLIZUMAB
     Route: 058
  7. NEMOLIZUMAB [Suspect]
     Active Substance: NEMOLIZUMAB
     Route: 058

REACTIONS (1)
  - Pemphigoid [Recovering/Resolving]

NARRATIVE: CASE EVENT DATE: 20250101
